FAERS Safety Report 4566704-5 (Version None)
Quarter: 2005Q1

REPORT INFORMATION
  Report Type: 
  Country: None (occurrence: None)
  Receive Date: 20050201
  Receipt Date: 20010522
  Transmission Date: 20050727
  Serious: Yes (Hospitalization, Other)
  Sender: FDA-Public Use
  Company Number: US-BRISTOL-MYERS SQUIBB COMPANY-10858173

PATIENT
  Age: 35 Year
  Sex: Male

DRUGS (1)
  1. STADOL [Suspect]
     Indication: MIGRAINE
     Dosage: HAS ALREADY TAKEN 105 BOTTLES OF STADOL NS
     Route: 045
     Dates: start: 19991101

REACTIONS (6)
  - CHEST PAIN [None]
  - CONDITION AGGRAVATED [None]
  - DEPENDENCE [None]
  - GASTROOESOPHAGEAL REFLUX DISEASE [None]
  - HEADACHE [None]
  - SINUS DISORDER [None]
